FAERS Safety Report 9970911 (Version 1)
Quarter: 2014Q1

REPORT INFORMATION
  Report Type: Report from Study
  Country: US (occurrence: US)
  Receive Date: 20140306
  Receipt Date: 20140306
  Transmission Date: 20141002
  Serious: No
  Sender: FDA-Public Use
  Company Number: US-ABBVIE-13P-163-1149204-00

PATIENT
  Age: 63 Year
  Sex: Male
  Weight: 111.23 kg

DRUGS (6)
  1. HUMIRA [Suspect]
     Indication: PSORIASIS
  2. HUMIRA [Suspect]
     Indication: PSORIATIC ARTHROPATHY
     Dosage: ONE WEEK AFTER 80 MG DOSE
     Dates: start: 2013
  3. LIPITOR [Concomitant]
     Indication: BLOOD CHOLESTEROL INCREASED
  4. HYDROCHLOROTHIAZIDE [Concomitant]
     Indication: HYPERTENSION
  5. AVAPRO [Concomitant]
     Indication: HYPERTENSION
  6. UNNAMED MEDICATION [Concomitant]
     Indication: HYPERTENSION

REACTIONS (2)
  - Toothache [Recovered/Resolved]
  - Tooth infection [Recovered/Resolved]
